FAERS Safety Report 24565130 (Version 2)
Quarter: 2024Q4

REPORT INFORMATION
  Report Type: Spontaneous
  Country: US (occurrence: US)
  Receive Date: 20241030
  Receipt Date: 20241128
  Transmission Date: 20250115
  Serious: Yes (Other)
  Sender: TEVA
  Company Number: US-TEVA-VS-3258331

PATIENT
  Age: 60 Year
  Sex: Male

DRUGS (4)
  1. METHOTREXATE [Suspect]
     Active Substance: METHOTREXATE
     Indication: Chronic lymphocytic leukaemia
     Route: 037
  2. METHOTREXATE [Suspect]
     Active Substance: METHOTREXATE
     Indication: Chronic lymphocytic leukaemia
     Dosage: TWO CYCLE
     Route: 042
  3. CYTARABINE [Concomitant]
     Active Substance: CYTARABINE
     Indication: Chronic lymphocytic leukaemia
     Route: 037
  4. HYDROCORTISONE ACETATE [Concomitant]
     Active Substance: HYDROCORTISONE ACETATE
     Indication: Chronic lymphocytic leukaemia
     Route: 037

REACTIONS (2)
  - Leukoencephalopathy [Recovered/Resolved]
  - Neurotoxicity [Recovered/Resolved]
